FAERS Safety Report 4405148-3 (Version None)
Quarter: 2004Q3

REPORT INFORMATION
  Report Type: 
  Country: None (occurrence: None)
  Receive Date: 20040722
  Receipt Date: 20040722
  Transmission Date: 20050211
  Serious: Yes (Other)
  Sender: FDA-Public Use
  Company Number: None

PATIENT

DRUGS (2)
  1. APLISOL PARKEDALE [Suspect]
     Dosage: 0.1 ML 1 TIME INTRADERMAL
     Route: 023
     Dates: start: 20040701, end: 20040721
  2. APLISOL PARKEDALE [Suspect]
     Dosage: 0.1 ML 1 TIME INTRADERMAL
     Route: 023
     Dates: start: 20040701, end: 20040721

REACTIONS (2)
  - FALSE POSITIVE TUBERCULOSIS TEST [None]
  - PHARMACEUTICAL PRODUCT COMPLAINT [None]
